FAERS Safety Report 10263144 (Version 2)
Quarter: 2014Q2

REPORT INFORMATION
  Report Type: Spontaneous
  Country: US (occurrence: US)
  Receive Date: 20140626
  Receipt Date: 20140626
  Transmission Date: 20141212
  Serious: No
  Sender: FDA-Public Use
  Company Number: US-MYLANLABS-2014S1003217

PATIENT
  Age: 73 Year
  Sex: Male

DRUGS (2)
  1. CLOZAPINE TABLETS [Suspect]
     Route: 048
     Dates: start: 20131206, end: 20131227
  2. SINEMET [Concomitant]
     Dosage: 25/100MG

REACTIONS (1)
  - Peripheral swelling [Not Recovered/Not Resolved]
